FAERS Safety Report 19498427 (Version 1)
Quarter: 2021Q3

REPORT INFORMATION
  Report Type: Spontaneous
  Country: CN (occurrence: CN)
  Receive Date: 20210706
  Receipt Date: 20210706
  Transmission Date: 20211014
  Serious: Yes (Hospitalization)
  Sender: FDA-Public Use
  Company Number: CN-BAXTER-2021BAX018600

PATIENT
  Age: 48 Year
  Sex: Female
  Weight: 59 kg

DRUGS (8)
  1. 0.9% SODIUM CHLORIDE INJECTION [Suspect]
     Active Substance: SODIUM CHLORIDE
     Dosage: 1?2ND CYCLE OF CHEMOTHERAPY; EPIRUBICIN HYDROCHLORIDE + 0.9% NS
     Route: 041
  2. ENDOXAN [Suspect]
     Active Substance: CYCLOPHOSPHAMIDE
     Indication: INVASIVE BREAST CARCINOMA
     Dosage: 1?2ND CYCLE OF CHEMOTHERAPY; CYCLOPHOSPHAMIDE + 0.9% NS
     Route: 041
  3. 0.9% SODIUM CHLORIDE INJECTION [Suspect]
     Active Substance: SODIUM CHLORIDE
     Dosage: 3RD CYCLE OF CHEMOTHERAPY: CYCLOPHOSPHAMIDE 0.8 G + 0.9% NS 100 ML
     Route: 041
     Dates: start: 20210526, end: 20210526
  4. ENDOXAN [Suspect]
     Active Substance: CYCLOPHOSPHAMIDE
     Indication: BREAST CANCER STAGE II
     Dosage: 3RD CYCLE OF CHEMOTHERAPY: CYCLOPHOSPHAMIDE 0.8 G + 0.9% NS 100 ML
     Route: 041
     Dates: start: 20210526, end: 20210526
  5. EPIRUBICIN HYDROCHLORIDE. [Suspect]
     Active Substance: EPIRUBICIN HYDROCHLORIDE
     Indication: INVASIVE BREAST CARCINOMA
     Dosage: 1?2ND CYCLE OF CHEMOTHERAPY; EPIRUBICIN HYDROCHLORIDE + 0.9% NS
     Route: 041
  6. EPIRUBICIN HYDROCHLORIDE. [Suspect]
     Active Substance: EPIRUBICIN HYDROCHLORIDE
     Indication: BREAST CANCER STAGE II
     Dosage: 3RD CYCLE OF CHEMOTHERAPY; EPIRUBICIN HYDROCHLORIDE 140 MG + 0.9% NS 50 ML
     Route: 041
     Dates: start: 20210526, end: 20210526
  7. 0.9% SODIUM CHLORIDE INJECTION [Suspect]
     Active Substance: SODIUM CHLORIDE
     Indication: MEDICATION DILUTION
     Dosage: 1?2ND CYCLE OF CHEMOTHERAPY; CYCLOPHOSPHAMIDE + 0.9% NS
     Route: 041
  8. 0.9% SODIUM CHLORIDE INJECTION [Suspect]
     Active Substance: SODIUM CHLORIDE
     Dosage: 3RD CYCLE OF CHEMOTHERAPY; EPIRUBICIN HYDROCHLORIDE 140 MG + 0.9% NS 50 ML
     Route: 041
     Dates: start: 20210526, end: 20210526

REACTIONS (1)
  - Myelosuppression [Recovering/Resolving]

NARRATIVE: CASE EVENT DATE: 20210602
